FAERS Safety Report 8079613-4 (Version None)
Quarter: 2012Q1

REPORT INFORMATION
  Report Type: 
  Country: None (occurrence: None)
  Receive Date: 20120128
  Receipt Date: 20110802
  Transmission Date: 20120608
  Serious: No
  Sender: FDA-Public Use
  Company Number: US-ABBOTT-11P-163-0843388-00

PATIENT
  Sex: Male
  Weight: 70.37 kg

DRUGS (4)
  1. HUMIRA [Suspect]
     Indication: CROHN'S DISEASE
     Route: 058
     Dates: start: 20110501, end: 20110501
  2. HUMIRA [Suspect]
     Route: 058
     Dates: start: 20110601
  3. HUMIRA [Suspect]
     Route: 058
     Dates: start: 20110501, end: 20110501
  4. LIALDA [Concomitant]
     Indication: CROHN'S DISEASE

REACTIONS (2)
  - INJECTION SITE PAPULE [None]
  - INJECTION SITE ERYTHEMA [None]
